FAERS Safety Report 19463271 (Version 1)
Quarter: 2021Q2

REPORT INFORMATION
  Report Type: Report from Study
  Country: US (occurrence: US)
  Receive Date: 20210625
  Receipt Date: 20210625
  Transmission Date: 20210717
  Serious: Yes (Hospitalization)
  Sender: FDA-Public Use
  Company Number: US-BRISTOL-MYERS SQUIBB COMPANY-BMS-2021-058902

PATIENT
  Age: 47 Year
  Sex: Male
  Weight: 103.41 kg

DRUGS (2)
  1. DS3201 [Suspect]
     Active Substance: INVESTIGATIONAL PRODUCT
     Indication: PROSTATE CANCER
     Dosage: 150 MILLIGRAM, QD
     Route: 048
     Dates: start: 20210204
  2. IPILIMUMAB [Suspect]
     Active Substance: IPILIMUMAB
     Indication: PROSTATE CANCER
     Dosage: 3 MILLIGRAM/KILOGRAM, Q6WK
     Route: 042
     Dates: start: 20210204

REACTIONS (1)
  - Urinary tract infection [Unknown]

NARRATIVE: CASE EVENT DATE: 20210611
